FAERS Safety Report 17605566 (Version 2)
Quarter: 2021Q4

REPORT INFORMATION
  Report Type: Report from Study
  Country: US (occurrence: US)
  Receive Date: 20200331
  Receipt Date: 20211229
  Transmission Date: 20220303
  Serious: Yes (Death)
  Sender: FDA-Public Use
  Company Number: US-TAIHO ONCOLOGY INC-EU-2020-01026

PATIENT
  Age: 73 Year
  Sex: Male

DRUGS (7)
  1. LONSURF [Suspect]
     Active Substance: TIPIRACIL HYDROCHLORIDE\TRIFLURIDINE
     Indication: Colon cancer
     Dosage: CYCLE NUMBER UNKNOWN.
     Route: 048
     Dates: start: 20200304
  2. METHADONE [Concomitant]
     Active Substance: METHADONE HYDROCHLORIDE
  3. CIPROFLOXACIN [Concomitant]
     Active Substance: CIPROFLOXACIN
  4. ZOFRAN [Concomitant]
     Active Substance: ONDANSETRON HYDROCHLORIDE
     Dosage: ORAL DISINTEGRATING TABLET.
     Route: 048
  5. DOLOPHINE [Concomitant]
     Active Substance: METHADONE HYDROCHLORIDE
     Dosage: HALF TABLET
  6. CIPRO [Concomitant]
     Active Substance: CIPROFLOXACIN HYDROCHLORIDE
     Dosage: AS PRESCRIBED.
  7. MYSOLINE [Concomitant]
     Active Substance: PRIMIDONE
     Dosage: 2TABS AM AND 2 TABS PM.

REACTIONS (5)
  - Death [Fatal]
  - Abdominal mass [Unknown]
  - Abdominal discomfort [Unknown]
  - Decreased appetite [Unknown]
  - Vomiting [Unknown]

NARRATIVE: CASE EVENT DATE: 20200323
